FAERS Safety Report 21790183 (Version 1)
Quarter: 2022Q4

REPORT INFORMATION
  Report Type: Spontaneous
  Country: IR (occurrence: IR)
  Receive Date: 20221228
  Receipt Date: 20221228
  Transmission Date: 20230112
  Serious: Yes (Death, Life-Threatening, Hospitalization, Other)
  Sender: FDA-Public Use
  Company Number: IR-DENTSPLY-2022SCDP000361

PATIENT
  Sex: Female

DRUGS (1)
  1. LIDOCAINE [Suspect]
     Active Substance: LIDOCAINE
     Indication: Completed suicide
     Dosage: UNK AMOUNTS OF LIDOCAINE SPRAY SOLUTION
     Route: 048

REACTIONS (11)
  - Local anaesthetic systemic toxicity [Fatal]
  - Generalised tonic-clonic seizure [Fatal]
  - Metabolic acidosis [Fatal]
  - Electrocardiogram QRS complex prolonged [Fatal]
  - Mydriasis [Fatal]
  - Sinus tachycardia [Fatal]
  - Conduction disorder [Fatal]
  - Electrocardiogram PR prolongation [Fatal]
  - Product use issue [Fatal]
  - Cardio-respiratory arrest [Fatal]
  - Hypotension [Fatal]
